FAERS Safety Report 9055821 (Version 1)
Quarter: 2013Q1

REPORT INFORMATION
  Report Type: Report from Study
  Country: CA (occurrence: CA)
  Receive Date: 20130206
  Receipt Date: 20130206
  Transmission Date: 20140127
  Serious: Yes (Hospitalization)
  Sender: FDA-Public Use
  Company Number: CA-B.I. PHARMACEUTICALS,INC./RIDGEFIELD-2013-BI-01811BI

PATIENT
  Age: 72 None
  Sex: Female
  Weight: 74 kg

DRUGS (1)
  1. BIBF 1120 [Suspect]
     Indication: IDIOPATHIC PULMONARY FIBROSIS
     Dosage: 200 MG
     Route: 048
     Dates: start: 20121126, end: 20130119

REACTIONS (1)
  - Haematochezia [Recovered/Resolved]
